FAERS Safety Report 15334219 (Version 1)
Quarter: 2018Q3

REPORT INFORMATION
  Report Type: Spontaneous
  Country: US (occurrence: US)
  Receive Date: 20180830
  Receipt Date: 20180830
  Transmission Date: 20181010
  Serious: Yes (Other)
  Sender: FDA-Public Use
  Company Number: US-PFIZER INC-2018345859

PATIENT
  Sex: Female

DRUGS (1)
  1. LYRICA [Suspect]
     Active Substance: PREGABALIN
     Dosage: UNK

REACTIONS (6)
  - Fibromyalgia [Unknown]
  - Blood pressure increased [Unknown]
  - Panic attack [Unknown]
  - Diabetes mellitus [Unknown]
  - Spinal cord injury [Unknown]
  - Myocardial infarction [Unknown]
